FAERS Safety Report 9053803 (Version 1)
Quarter: 2013Q1

REPORT INFORMATION
  Report Type: Spontaneous
  Country: US (occurrence: US)
  Receive Date: 20130207
  Receipt Date: 20130207
  Transmission Date: 20140127
  Serious: Yes (Hospitalization)
  Sender: FDA-Public Use
  Company Number: US-GLAXOSMITHKLINE-A1010384A

PATIENT
  Age: 56 Year
  Sex: Female

DRUGS (6)
  1. LOVAZA [Suspect]
     Indication: BLOOD TRIGLYCERIDES INCREASED
     Dosage: 1CAP TWICE PER DAY
     Route: 048
     Dates: start: 20121001, end: 20121031
  2. VERAPAMIL [Concomitant]
  3. FLOVENT [Concomitant]
  4. CLARINEX [Concomitant]
  5. LIPITOR [Concomitant]
  6. HYDROCODONE [Concomitant]

REACTIONS (2)
  - Chest discomfort [Recovered/Resolved]
  - Drug administration error [Unknown]
